FAERS Safety Report 4368482-1 (Version None)
Quarter: 2004Q2

REPORT INFORMATION
  Report Type: 
  Country: None (occurrence: None)
  Receive Date: 20040528
  Receipt Date: 20040518
  Transmission Date: 20050107
  Serious: Yes (Other)
  Sender: FDA-Public Use
  Company Number: HQWYE314101APR04

PATIENT
  Age: 61 Year
  Sex: Female

DRUGS (6)
  1. CORDAREX (AMIODARONE, TABLET) [Suspect]
     Indication: ATRIAL FIBRILLATION
     Dosage: 200 MG 2X PER 1 DAY; ORAL
     Route: 048
     Dates: start: 20020101, end: 20040322
  2. CORDAREX (AMIODARONE, TABLET) [Suspect]
     Indication: CONGESTIVE CARDIOMYOPATHY
     Dosage: 200 MG 2X PER 1 DAY; ORAL
     Route: 048
     Dates: start: 20020101, end: 20040322
  3. ISOPTIN [Concomitant]
  4. MARCUMAR [Concomitant]
  5. RAMIPRIL [Concomitant]
  6. LEVOTHYROXINE SODIUM [Concomitant]

REACTIONS (7)
  - BLOOD CREATINE PHOSPHOKINASE INCREASED [None]
  - BLOOD LACTATE DEHYDROGENASE INCREASED [None]
  - FATIGUE [None]
  - MYALGIA [None]
  - POLYNEUROPATHY [None]
  - SKIN DISCOLOURATION [None]
  - TRANSAMINASES INCREASED [None]
